FAERS Safety Report 6457261-7 (Version None)
Quarter: 2009Q4

REPORT INFORMATION
  Report Type: 
  Country: None (occurrence: None)
  Receive Date: 20091125
  Receipt Date: 20091120
  Transmission Date: 20100525
  Serious: Yes (Hospitalization)
  Sender: FDA-Public Use
  Company Number: JP-B.I. PHARMACEUTICALS,INC./RIDGEFIELD-2009-BP-12993NB

PATIENT
  Age: 70 Year
  Sex: Male

DRUGS (5)
  1. MICARDIS [Suspect]
     Route: 048
  2. ARICEPT [Suspect]
     Route: 048
  3. YOKU-KAN-SAN [Suspect]
     Route: 048
  4. GASTER D [Concomitant]
     Route: 065
  5. LIPOVAS [Concomitant]
     Route: 048

REACTIONS (1)
  - HYPOGLYCAEMIA [None]
